FAERS Safety Report 6256621-7 (Version None)
Quarter: 2009Q2

REPORT INFORMATION
  Report Type: 
  Country: None (occurrence: None)
  Receive Date: 20090630
  Receipt Date: 20090630
  Transmission Date: 20091009
  Serious: Yes (Life-Threatening, Hospitalization)
  Sender: FDA-Public Use
  Company Number: None

PATIENT
  Sex: Male
  Weight: 88.4514 kg

DRUGS (1)
  1. CIPRODEX [Suspect]
     Indication: EAR INFECTION
     Dosage: 5 DROPS TWICE DAILY INTRAMEDULLAR
     Route: 028
     Dates: start: 20090424, end: 20090502

REACTIONS (1)
  - URINARY RETENTION [None]
